FAERS Safety Report 4988185-X (Version None)
Quarter: 2006Q2

REPORT INFORMATION
  Report Type: 
  Country: None (occurrence: None)
  Receive Date: 20060501
  Receipt Date: 20000724
  Transmission Date: 20061013
  Serious: Yes (Hospitalization, Disabling)
  Sender: FDA-Public Use
  Company Number: US-MERCK-00072225

PATIENT
  Age: 49 Year
  Sex: Female

DRUGS (6)
  1. VIOXX [Suspect]
     Indication: OSTEOARTHRITIS
     Route: 048
     Dates: start: 20000622, end: 20000721
  2. VIOXX [Suspect]
     Indication: MENISCUS LESION
     Route: 048
     Dates: start: 20000622, end: 20000721
  3. ALCOHOL [Suspect]
     Route: 065
  4. AMBIEN [Concomitant]
     Indication: INSOMNIA
     Route: 065
  5. TYLENOL (CAPLET) [Concomitant]
     Route: 065
  6. TYLENOL W/ CODEINE [Concomitant]
     Route: 065

REACTIONS (13)
  - ANAEMIA [None]
  - ANAL HAEMORRHAGE [None]
  - COLITIS [None]
  - DEPRESSION [None]
  - DIVERTICULUM [None]
  - DIZZINESS [None]
  - GASTRIC ULCER HAEMORRHAGE [None]
  - HAEMORRHOIDAL HAEMORRHAGE [None]
  - HAEMORRHOIDS [None]
  - HEADACHE [None]
  - LOWER GASTROINTESTINAL HAEMORRHAGE [None]
  - UPPER GASTROINTESTINAL HAEMORRHAGE [None]
  - VOMITING [None]
